FAERS Safety Report 5153626-4 (Version None)
Quarter: 2006Q4

REPORT INFORMATION
  Report Type: 
  Country: None (occurrence: None)
  Receive Date: 20061114
  Receipt Date: 20061030
  Transmission Date: 20070319
  Serious: Yes (Life-Threatening, Hospitalization, Other)
  Sender: FDA-Public Use
  Company Number: GXKR2006GB06875

PATIENT
  Age: 39 Year
  Sex: Female

DRUGS (1)
  1. TRIMETHOPRIM [Suspect]
     Dosage: 200 MG, BID, ORAL
     Route: 048
     Dates: start: 20061007, end: 20061012

REACTIONS (2)
  - PANCYTOPENIA [None]
  - RASH [None]
